FAERS Safety Report 8846153 (Version 1)
Quarter: 2012Q4

REPORT INFORMATION
  Report Type: 
  Country: CH (occurrence: CH)
  Receive Date: 20121017
  Receipt Date: 20121017
  Transmission Date: 20130627
  Serious: Yes (Hospitalization)
  Sender: FDA-Public Use
  Company Number: CH-ACTELION-A-CH2012-72453

PATIENT
  Age: 55 Year
  Sex: Female

DRUGS (5)
  1. TRACLEER [Suspect]
     Indication: PULMONARY ARTERIAL HYPERTENSION
     Dosage: 125 mg, bid
     Route: 048
     Dates: start: 20120628, end: 20120727
  2. TRACLEER [Suspect]
     Dosage: 62.5 mg, bid
     Route: 048
     Dates: start: 20120508, end: 20120627
  3. MARCOUMAR [Suspect]
     Dosage: 3 mg, UNK
     Dates: start: 20120508, end: 20120727
  4. FERRUM HAUSMANN [Concomitant]
     Dosage: 100 mg, qd
     Dates: start: 20120505, end: 20120727
  5. TOREM [Concomitant]
     Dosage: 5 mg, qid
     Dates: end: 201208

REACTIONS (11)
  - Hepatitis cholestatic [Recovering/Resolving]
  - Hepatocellular injury [Recovering/Resolving]
  - Liver disorder [Recovering/Resolving]
  - Aspartate aminotransferase increased [Recovering/Resolving]
  - Alanine aminotransferase increased [Recovering/Resolving]
  - Blood bilirubin increased [Recovering/Resolving]
  - Blood alkaline phosphatase increased [Recovering/Resolving]
  - Jaundice [Recovering/Resolving]
  - Ascites [Recovering/Resolving]
  - Biopsy liver [Recovering/Resolving]
  - International normalised ratio increased [Recovered/Resolved]
